FAERS Safety Report 7009233-1 (Version None)
Quarter: 2010Q3

REPORT INFORMATION
  Report Type: 
  Country: None (occurrence: None)
  Receive Date: 20100923
  Receipt Date: 20100914
  Transmission Date: 20110219
  Serious: Yes (Hospitalization, Other)
  Sender: FDA-Public Use
  Company Number: US-JNJFOC-20100510873

PATIENT
  Sex: Female

DRUGS (5)
  1. LEVAQUIN [Suspect]
     Indication: BRONCHITIS
     Route: 048
  2. LEVAQUIN [Suspect]
     Indication: PHARYNGITIS STREPTOCOCCAL
     Route: 048
  3. LEVAQUIN [Suspect]
     Route: 042
  4. PREDNISONE [Suspect]
     Indication: PRODUCT USED FOR UNKNOWN INDICATION
     Route: 065
  5. DECADRON [Suspect]
     Indication: PRODUCT USED FOR UNKNOWN INDICATION
     Route: 065

REACTIONS (6)
  - CARPAL TUNNEL SYNDROME [None]
  - JOINT DISLOCATION [None]
  - PAIN IN EXTREMITY [None]
  - TENDON RUPTURE [None]
  - TENDONITIS [None]
  - TRIGGER FINGER [None]
